FAERS Safety Report 6147747-7 (Version None)
Quarter: 2009Q2

REPORT INFORMATION
  Report Type: 
  Country: None (occurrence: None)
  Receive Date: 20090408
  Receipt Date: 20090324
  Transmission Date: 20091009
  Serious: No
  Sender: FDA-Public Use
  Company Number: AU-BIOGENIDEC-2008BI034129

PATIENT
  Age: 43 Year
  Sex: Female

DRUGS (2)
  1. TYSABRI [Suspect]
     Indication: RELAPSING-REMITTING MULTIPLE SCLEROSIS
     Route: 030
     Dates: start: 20080827, end: 20081022
  2. TYSABRI [Suspect]
     Dates: start: 20081219

REACTIONS (1)
  - LYMPHOCYTOSIS [None]
